FAERS Safety Report 8221564-6 (Version None)
Quarter: 2012Q1

REPORT INFORMATION
  Report Type: 
  Country: None (occurrence: None)
  Receive Date: 20120320
  Receipt Date: 20120315
  Transmission Date: 20120608
  Serious: Yes (Death)
  Sender: FDA-Public Use
  Company Number: US-ACTELION-A-US2012-59331

PATIENT

DRUGS (6)
  1. REVATIO [Concomitant]
  2. TRACLEER [Suspect]
     Indication: PULMONARY ARTERIAL HYPERTENSION
     Dosage: UNK
     Route: 048
     Dates: start: 20091222
  3. COUMADIN [Concomitant]
  4. RITUXAN [Concomitant]
  5. OXYGEN [Concomitant]
  6. MYCOPHENOLATE MOFETIL (CELLCEPT) [Concomitant]

REACTIONS (4)
  - DYSPNOEA [None]
  - DEATH [None]
  - RESPIRATORY TRACT CONGESTION [None]
  - SINUSITIS [None]
